FAERS Safety Report 8855081 (Version 1)
Quarter: 2012Q4

REPORT INFORMATION
  Report Type: 
  Country: DE (occurrence: DE)
  Receive Date: 20121023
  Receipt Date: 20121023
  Transmission Date: 20130627
  Serious: Yes (Hospitalization, Congenital Anomaly, Other)
  Sender: FDA-Public Use
  Company Number: DE-TEVA-364229GER

PATIENT
  Age: 0 Year
  Sex: Male

DRUGS (4)
  1. SERTRALINE [Suspect]
     Route: 064
  2. FOLIO FORTE [Concomitant]
     Route: 064
  3. EUPHORBIUM [Concomitant]
     Route: 064
  4. AMOXICILLIN PLUS [Concomitant]
     Route: 064

REACTIONS (7)
  - Neonatal respiratory distress syndrome [Recovered/Resolved]
  - Large for dates baby [Unknown]
  - Patent ductus arteriosus [Recovering/Resolving]
  - Atrial septal defect [Unknown]
  - Congenital tricuspid valve incompetence [Unknown]
  - Agitation neonatal [Recovered/Resolved]
  - Hypertonia neonatal [Recovered/Resolved]
